FAERS Safety Report 7278760-4 (Version None)
Quarter: 2011Q1

REPORT INFORMATION
  Report Type: 
  Country: None (occurrence: None)
  Receive Date: 20110207
  Receipt Date: 20110125
  Transmission Date: 20110831
  Serious: Yes (Hospitalization, Other)
  Sender: FDA-Public Use
  Company Number: US-CELGENEUS-163-21880-10120716

PATIENT
  Sex: Female

DRUGS (10)
  1. METOPROLOL TARTRATE [Concomitant]
     Route: 065
  2. K-DUR [Concomitant]
     Route: 065
     Dates: start: 20090101
  3. CALCIUM +D [Concomitant]
     Route: 065
  4. REVLIMID [Suspect]
     Route: 048
     Dates: start: 20100501
  5. ASPIRIN [Concomitant]
     Route: 065
  6. PROTONIX [Concomitant]
     Route: 065
  7. REVLIMID [Suspect]
     Indication: NON-HODGKIN'S LYMPHOMA
     Route: 048
     Dates: start: 20081201
  8. REVLIMID [Suspect]
     Route: 048
     Dates: start: 20090501
  9. ACTONEL [Concomitant]
     Route: 065
  10. GABAPENTIN [Concomitant]
     Route: 065
     Dates: start: 20100929

REACTIONS (2)
  - TONGUE NEOPLASM MALIGNANT STAGE UNSPECIFIED [None]
  - INTESTINAL OBSTRUCTION [None]
